FAERS Safety Report 9777992 (Version 2)
Quarter: 2013Q4

REPORT INFORMATION
  Report Type: Spontaneous
  Country: IL (occurrence: IL)
  Receive Date: 20131223
  Receipt Date: 20131231
  Transmission Date: 20140711
  Serious: Yes (Hospitalization)
  Sender: FDA-Public Use
  Company Number: IL-AMGEN-ISRSP2013088430

PATIENT
  Sex: Female
  Weight: 60 kg

DRUGS (1)
  1. NPLATE [Suspect]
     Indication: PRODUCT USED FOR UNKNOWN INDICATION
     Dosage: 310 MUG, QWK
     Route: 058
     Dates: start: 20120329

REACTIONS (1)
  - Spinal fracture [Recovering/Resolving]
